FAERS Safety Report 25597084 (Version 1)
Quarter: 2025Q3

REPORT INFORMATION
  Report Type: Spontaneous
  Country: US (occurrence: None)
  Receive Date: 20250723
  Receipt Date: 20250723
  Transmission Date: 20251020
  Serious: Yes (Hospitalization)
  Sender: FDA-CTU
  Company Number: None

PATIENT
  Sex: Female

DRUGS (8)
  1. NUCALA [Suspect]
     Active Substance: MEPOLIZUMAB
     Indication: Asthma
     Dates: start: 20250206
  2. ALBUTEROL SULFATE [Concomitant]
     Active Substance: ALBUTEROL SULFATE
  3. FAMOTIDINE TAB 40MG [Concomitant]
  4. IRON TAB 65MG [Concomitant]
  5. KP VITAMIN D [Concomitant]
  6. MONTELUKAST SODIUM [Concomitant]
     Active Substance: MONTELUKAST SODIUM
  7. TOPIRAMATE TAB 100MG [Concomitant]
  8. TRELEGY AER 200MCG [Concomitant]

REACTIONS (3)
  - Therapy non-responder [None]
  - Asthma [None]
  - Dyspnoea [None]
